FAERS Safety Report 10612966 (Version 1)
Quarter: 2014Q4

REPORT INFORMATION
  Report Type: Spontaneous
  Country: FR (occurrence: FR)
  Receive Date: 20141127
  Receipt Date: 20141127
  Transmission Date: 20150529
  Serious: Yes (Hospitalization)
  Sender: FDA-Public Use
  Company Number: PHHY2014FR149831

PATIENT
  Age: 76 Year
  Sex: Male

DRUGS (1)
  1. BROMOCRIPTINE [Suspect]
     Active Substance: BROMOCRIPTINE
     Indication: PARKINSON^S DISEASE
     Dosage: 30 MG, QD
     Route: 065

REACTIONS (9)
  - Cardiac failure congestive [Recovering/Resolving]
  - Mitral valve incompetence [Recovering/Resolving]
  - Aortic valve incompetence [Recovering/Resolving]
  - Dilatation ventricular [Recovering/Resolving]
  - Tricuspid valve incompetence [Recovering/Resolving]
  - Heart valve incompetence [Recovering/Resolving]
  - Dyspnoea [Recovering/Resolving]
  - Left atrial dilatation [Recovering/Resolving]
  - Coronary artery disease [Recovering/Resolving]
